FAERS Safety Report 4923880-X (Version None)
Quarter: 2006Q1

REPORT INFORMATION
  Report Type: 
  Country: None (occurrence: None)
  Receive Date: 20060227
  Receipt Date: 20050824
  Transmission Date: 20060701
  Serious: Yes (Hospitalization)
  Sender: FDA-Public Use
  Company Number: US-MERCK-0508USA04278

PATIENT
  Age: 57 Year
  Sex: Female
  Weight: 55 kg

DRUGS (11)
  1. VIOXX [Suspect]
     Indication: PAIN
     Route: 048
     Dates: start: 20011108, end: 20040325
  2. VIOXX [Suspect]
     Indication: ARTHRITIS
     Route: 048
     Dates: start: 20011108, end: 20040325
  3. LASIX [Concomitant]
     Route: 065
  4. POTASSIUM CHLORIDE [Concomitant]
     Route: 065
  5. FOSAMAX [Concomitant]
     Route: 048
  6. CARDURA [Concomitant]
     Route: 065
  7. TIAZAC [Concomitant]
     Route: 065
  8. LABETALOL HYDROCHLORIDE [Concomitant]
     Route: 065
  9. ATENOLOL [Concomitant]
     Route: 065
  10. ALLERGENIC EXTRACT [Concomitant]
     Route: 065
  11. [THERAPY UNSPECIFIED] [Concomitant]
     Route: 065

REACTIONS (7)
  - ABDOMINAL PAIN [None]
  - ACUTE MYOCARDIAL INFARCTION [None]
  - GINGIVITIS [None]
  - NASOPHARYNGITIS [None]
  - OSTEOPOROSIS [None]
  - VENTRICULAR DYSFUNCTION [None]
  - VULVOVAGINAL DRYNESS [None]
